FAERS Safety Report 9235805 (Version 2)
Quarter: 2013Q2

REPORT INFORMATION
  Report Type: Report from Study
  Country: MX (occurrence: MX)
  Receive Date: 20130417
  Receipt Date: 20130429
  Transmission Date: 20140414
  Serious: Yes (Other)
  Sender: FDA-Public Use
  Company Number: PHHY2013MX035960

PATIENT
  Age: 60 Year
  Sex: Male

DRUGS (3)
  1. CO-DIOVAN [Suspect]
     Indication: HYPERTENSION
     Dosage: 2 DF, (320 MG VAL /25 MG HCTZ) DAILY
     Route: 048
     Dates: start: 201210, end: 201301
  2. LANTUS [Concomitant]
     Indication: DIABETES MELLITUS
     Dosage: 22 IU, DAILY
     Dates: start: 201210
  3. INSOGEN PLUS [Concomitant]
     Indication: DIABETES MELLITUS
     Dosage: 3 UNK, DAILY
     Dates: start: 2010

REACTIONS (1)
  - Glaucoma [Not Recovered/Not Resolved]
